FAERS Safety Report 7403494-2 (Version None)
Quarter: 2011Q2

REPORT INFORMATION
  Report Type: 
  Country: None (occurrence: None)
  Receive Date: 20110408
  Receipt Date: 20110404
  Transmission Date: 20111010
  Serious: Yes (Death, Hospitalization)
  Sender: FDA-Public Use
  Company Number: AT-CEPHALON-2011001705

PATIENT
  Sex: Male

DRUGS (5)
  1. BENDAMUSTINE HCL [Suspect]
     Indication: CHRONIC LYMPHOCYTIC LEUKAEMIA
     Route: 042
     Dates: start: 20080511, end: 20090715
  2. BENDAMUSTINE HCL [Suspect]
     Route: 042
     Dates: start: 20090902, end: 20090904
  3. BACTRIM [Concomitant]
     Dates: start: 20090507
  4. CAMPATH [Suspect]
     Indication: CHRONIC LYMPHOCYTIC LEUKAEMIA
     Route: 058
     Dates: start: 20090510, end: 20090916
  5. VALCYTE [Concomitant]
     Dates: start: 20090507

REACTIONS (3)
  - BRONCHOPULMONARY ASPERGILLOSIS [None]
  - ACUTE RESPIRATORY DISTRESS SYNDROME [None]
  - RESPIRATORY FAILURE [None]
